FAERS Safety Report 5206982-2 (Version None)
Quarter: 2007Q1

REPORT INFORMATION
  Report Type: 
  Country: None (occurrence: None)
  Receive Date: 20070108
  Receipt Date: 20070108
  Transmission Date: 20070707
  Serious: Yes (Other)
  Sender: FDA-Public Use
  Company Number: None

PATIENT
  Age: 64 Year
  Sex: Female
  Weight: 58.9676 kg

DRUGS (1)
  1. PRILOSEC [Suspect]
     Indication: GASTRITIS
     Dosage: 1 DAILY PO
     Route: 048
     Dates: start: 20061103, end: 20070109

REACTIONS (1)
  - CYSTITIS HAEMORRHAGIC [None]
